FAERS Safety Report 4817115-6 (Version None)
Quarter: 2005Q4

REPORT INFORMATION
  Report Type: 
  Country: None (occurrence: None)
  Receive Date: 20051018
  Receipt Date: 20050404
  Transmission Date: 20060501
  Serious: Yes (Other)
  Sender: FDA-Public Use
  Company Number: PHEH2004US07297

PATIENT
  Age: 71 Year
  Sex: Male
  Weight: 81.6 kg

DRUGS (23)
  1. ZOMETA [Suspect]
     Dosage: MONTHLY; INTRAVENOUS
     Route: 042
     Dates: start: 20030301, end: 20040301
  2. AREDIA [Suspect]
     Dates: start: 20010620, end: 20021101
  3. LUPRON [Concomitant]
  4. CASODEX [Concomitant]
  5. AVANDIA [Concomitant]
  6. PRILOSEC [Concomitant]
  7. LIPITOR/NET (ATORVASTATIN CALCIUM) [Concomitant]
  8. GLUCOPHAGE [Concomitant]
  9. PROSCAR [Concomitant]
  10. KETOCONAZOLE [Concomitant]
  11. HYDROCORTISONE [Concomitant]
  12. ACTIGALL [Concomitant]
  13. ESTRADERM [Concomitant]
  14. DOSTINEX [Concomitant]
  15. CELEBREX [Concomitant]
  16. STARLIX [Concomitant]
  17. AMARYL [Concomitant]
  18. DOXYCYCLINE [Concomitant]
  19. CALCITRIOL [Concomitant]
  20. ZOLADEX [Concomitant]
  21. HERBAL EXTRACTS NOS (NO INGREDIENTS/SUBSTANCES) [Concomitant]
  22. VITAMIN C (ASCORBIC ACID) [Concomitant]
  23. ASPIRIN [Concomitant]

REACTIONS (26)
  - ABSCESS JAW [None]
  - ARTERIOSCLEROSIS [None]
  - ASTHENIA [None]
  - BONE DEBRIDEMENT [None]
  - BONE DISORDER [None]
  - COUGH [None]
  - DEPRESSION [None]
  - DIARRHOEA [None]
  - DIZZINESS [None]
  - DYSPNOEA [None]
  - ERECTILE DYSFUNCTION [None]
  - EXCESSIVE GRANULATION TISSUE [None]
  - EYE PRURITUS [None]
  - FATIGUE [None]
  - FISTULA [None]
  - GYNAECOMASTIA [None]
  - HYPOGONADISM MALE [None]
  - IMPAIRED HEALING [None]
  - MOUTH ULCERATION [None]
  - OSTEOMYELITIS [None]
  - OSTEONECROSIS [None]
  - PAIN IN JAW [None]
  - PHARYNGOLARYNGEAL PAIN [None]
  - PLEURAL EFFUSION [None]
  - PRIMARY SEQUESTRUM [None]
  - RHINORRHOEA [None]
